FAERS Safety Report 5097927-7 (Version None)
Quarter: 2006Q3

REPORT INFORMATION
  Report Type: 
  Country: None (occurrence: None)
  Receive Date: 20060905
  Receipt Date: 20060905
  Transmission Date: 20061208
  Serious: Yes (Death)
  Sender: FDA-Public Use
  Company Number: None

PATIENT
  Sex: Female

DRUGS (5)
  1. SEROQUEL [Suspect]
     Indication: BIPOLAR DISORDER
     Dates: start: 20030101, end: 20060414
  2. SEROQUEL [Suspect]
     Indication: SCHIZOPHRENIA
     Dates: start: 20030101, end: 20060414
  3. HALDOL [Concomitant]
  4. BENZTROPINE MESYLATE [Concomitant]
  5. NAPROXIN [Concomitant]

REACTIONS (6)
  - ARTERIOSCLEROSIS [None]
  - CAROTID ARTERY OCCLUSION [None]
  - DIABETES MELLITUS [None]
  - DIALYSIS [None]
  - KETOSIS [None]
  - MENTAL DISORDER [None]
